FAERS Safety Report 8585839-3 (Version None)
Quarter: 2012Q3

REPORT INFORMATION
  Report Type: 
  Country: None (occurrence: None)
  Receive Date: 20120810
  Receipt Date: 20120801
  Transmission Date: 20120928
  Serious: Yes (Death)
  Sender: FDA-Public Use
  Company Number: IT-CELGENEUS-083-21880-11113309

PATIENT
  Sex: Female

DRUGS (2)
  1. REVLIMID [Suspect]
     Indication: B-CELL LYMPHOMA
     Route: 048
     Dates: start: 20090515, end: 20090702
  2. DEXAMETHASONE [Concomitant]
     Indication: IMMUNOSUPPRESSION
     Route: 065

REACTIONS (1)
  - LYMPHOMA [None]
